FAERS Safety Report 4412473-9 (Version None)
Quarter: 2004Q2

REPORT INFORMATION
  Report Type: 
  Country: None (occurrence: None)
  Receive Date: 20040630
  Receipt Date: 20040420
  Transmission Date: 20050107
  Serious: No
  Sender: FDA-Public Use
  Company Number: 04P-163-0258052-00

PATIENT
  Age: 65 Year
  Sex: Male

DRUGS (5)
  1. HUMIRA [Suspect]
     Indication: RHEUMATOID ARTHRITIS
     Dosage: 40 MG, 1 IN 2 WK, SUBCUTANEOUS
     Route: 058
     Dates: start: 20040322, end: 20040419
  2. PREDNISONE [Concomitant]
  3. BLOOD PRESSURE PILL [Concomitant]
  4. FLUID PILL [Concomitant]
  5. CHOLESTEROL MEDICINE [Concomitant]

REACTIONS (1)
  - NASOPHARYNGITIS [None]
